FAERS Safety Report 7111724-X (Version None)
Quarter: 2010Q4

REPORT INFORMATION
  Report Type: 
  Country: None (occurrence: None)
  Receive Date: 20101118
  Receipt Date: 20101115
  Transmission Date: 20110411
  Serious: Yes (Other)
  Sender: FDA-Public Use
  Company Number: PT-MERCK-1011PRT00002

PATIENT
  Age: 48 Year
  Sex: Male

DRUGS (6)
  1. CANCIDAS [Suspect]
     Indication: CANDIDIASIS
     Route: 048
     Dates: start: 20101101
  2. EFAVIRENZ [Suspect]
     Indication: HIV INFECTION
     Route: 065
  3. RIFAMPIN [Concomitant]
     Indication: TUBERCULOSIS
     Route: 065
  4. VANCOMYCIN [Concomitant]
     Indication: RESPIRATORY FAILURE
     Route: 065
  5. PIPERACILLIN SODIUM AND TAZOBACTAM SODIUM [Concomitant]
     Indication: RESPIRATORY FAILURE
     Route: 065
  6. AMIKACIN [Concomitant]
     Indication: RESPIRATORY FAILURE
     Route: 065

REACTIONS (2)
  - GAMMA-GLUTAMYLTRANSFERASE INCREASED [None]
  - OVERDOSE [None]
